FAERS Safety Report 22310725 (Version 1)
Quarter: 2023Q2

REPORT INFORMATION
  Report Type: Report from Study
  Country: US (occurrence: US)
  Receive Date: 20230511
  Receipt Date: 20230511
  Transmission Date: 20230722
  Serious: Yes (Hospitalization, Other)
  Sender: FDA-Public Use
  Company Number: US-IPSEN Group, Research and Development-2023-08570

PATIENT
  Age: 84 Year
  Sex: Male

DRUGS (14)
  1. SOMATULINE DEPOT [Suspect]
     Active Substance: LANREOTIDE ACETATE
     Indication: Carcinoid syndrome
     Dosage: 250 MG TID WITH FOOD + LANEREOTIDE Q28 DAYS
     Route: 065
  2. LOSARTAN [Concomitant]
     Active Substance: LOSARTAN
  3. PRAVASTATIN [Concomitant]
     Active Substance: PRAVASTATIN
  4. LANTUS [Concomitant]
     Active Substance: INSULIN GLARGINE
  5. NOVOLOG [Concomitant]
     Active Substance: INSULIN ASPART
  6. FISH OIL [Concomitant]
     Active Substance: FISH OIL
  7. HERBALS\SAW PALMETTO [Concomitant]
     Active Substance: HERBALS\SAW PALMETTO
  8. VITAMIN D3 [Concomitant]
     Active Substance: CHOLECALCIFEROL
  9. MECLIZINE [Concomitant]
     Active Substance: MECLIZINE HYDROCHLORIDE
  10. TAMSULOSIN [Concomitant]
     Active Substance: TAMSULOSIN
  11. FLUTICASONE [Concomitant]
     Active Substance: FLUTICASONE
  12. ELIQUIS [Concomitant]
     Active Substance: APIXABAN
  13. VITAMINS [Concomitant]
     Active Substance: VITAMINS
  14. XERMELO [Concomitant]
     Active Substance: TELOTRISTAT ETHYL
     Route: 048
     Dates: start: 20230222

REACTIONS (7)
  - Dehydration [Unknown]
  - Diarrhoea [Unknown]
  - Therapy interrupted [Unknown]
  - Fatigue [Unknown]
  - Diarrhoea [Unknown]
  - Chronic kidney disease [Unknown]
  - Urinary retention [Unknown]
